FAERS Safety Report 14941802 (Version 1)
Quarter: 2018Q2

REPORT INFORMATION
  Report Type: Spontaneous
  Country: ES (occurrence: ES)
  Receive Date: 20180527
  Receipt Date: 20180527
  Transmission Date: 20180711
  Serious: Yes (Other)
  Sender: FDA-Public Use
  Company Number: PHHY2018ES005840

PATIENT
  Age: 74 Year
  Sex: Male

DRUGS (9)
  1. VALPROIC ACID. [Interacting]
     Active Substance: VALPROIC ACID
     Dosage: 1600 MG, QD
     Route: 065
  2. ARIPIPRAZOLE. [Interacting]
     Active Substance: ARIPIPRAZOLE
     Indication: PRODUCT USED FOR UNKNOWN INDICATION
     Route: 065
  3. VALPROIC ACID. [Suspect]
     Active Substance: VALPROIC ACID
     Indication: PRODUCT USED FOR UNKNOWN INDICATION
     Dosage: 900 MG, QD
     Route: 065
  4. QUETIAPINE. [Interacting]
     Active Substance: QUETIAPINE
     Indication: PRODUCT USED FOR UNKNOWN INDICATION
     Dosage: 50 MG, QD
     Route: 065
  5. QUETIAPINE. [Interacting]
     Active Substance: QUETIAPINE
     Dosage: 500 MG, QD
     Route: 065
  6. FINASTERIDE. [Concomitant]
     Active Substance: FINASTERIDE
     Indication: PRODUCT USED FOR UNKNOWN INDICATION
     Route: 065
  7. VALPROIC ACID. [Interacting]
     Active Substance: VALPROIC ACID
     Dosage: 2400 MG, QD
     Route: 065
  8. ALFUZOSIN [Concomitant]
     Active Substance: ALFUZOSIN
     Indication: PRODUCT USED FOR UNKNOWN INDICATION
     Route: 065
  9. LITHIUM. [Concomitant]
     Active Substance: LITHIUM
     Indication: PRODUCT USED FOR UNKNOWN INDICATION
     Route: 065

REACTIONS (6)
  - Blood thyroid stimulating hormone decreased [Recovered/Resolved]
  - Drug interaction [Unknown]
  - Depressed level of consciousness [Recovered/Resolved]
  - Coma [Recovered/Resolved]
  - Parkinsonism [Recovered/Resolved]
  - Altered state of consciousness [Recovered/Resolved]
